FAERS Safety Report 8141743-6 (Version None)
Quarter: 2012Q1

REPORT INFORMATION
  Report Type: 
  Country: None (occurrence: None)
  Receive Date: 20120216
  Receipt Date: 20120207
  Transmission Date: 20120608
  Serious: Yes (Other)
  Sender: FDA-Public Use
  Company Number: US-CELGENEUS-163-21880-11100741

PATIENT
  Sex: Female
  Weight: 57.658 kg

DRUGS (4)
  1. NEURONTIN [Concomitant]
     Route: 048
  2. REVLIMID [Suspect]
     Indication: MULTIPLE MYELOMA
     Dosage: 25 MILLIGRAM
     Route: 048
     Dates: start: 20090216
  3. PERCOCET [Concomitant]
     Indication: PAIN
     Route: 048
  4. DECADRON [Concomitant]
     Route: 048

REACTIONS (3)
  - PNEUMONIA [None]
  - BREAST CANCER [None]
  - WHITE BLOOD CELL COUNT DECREASED [None]
